FAERS Safety Report 15592662 (Version 3)
Quarter: 2018Q4

REPORT INFORMATION
  Report Type: Spontaneous
  Country: CA (occurrence: CA)
  Receive Date: 20181107
  Receipt Date: 20181226
  Transmission Date: 20190205
  Serious: Yes (Other)
  Sender: FDA-Public Use
  Company Number: CA-PFIZER INC-2018410403

PATIENT
  Age: 53 Year
  Sex: Female

DRUGS (2)
  1. XELJANZ [Suspect]
     Active Substance: TOFACITINIB CITRATE
     Indication: PSORIATIC ARTHROPATHY
     Dosage: 5 MG, 2X/DAY
     Route: 048
     Dates: start: 20181018, end: 20181030
  2. XELJANZ [Suspect]
     Active Substance: TOFACITINIB CITRATE
     Dosage: 5 MG, 1X/DAY
     Route: 048
     Dates: start: 201811, end: 201812

REACTIONS (17)
  - Dyspnoea [Not Recovered/Not Resolved]
  - Flatulence [Unknown]
  - Headache [Unknown]
  - Diarrhoea [Recovered/Resolved]
  - Lethargy [Unknown]
  - Melaena [Unknown]
  - Abnormal faeces [Unknown]
  - Insomnia [Unknown]
  - Oral mucosal blistering [Unknown]
  - Asthenia [Unknown]
  - Abdominal pain [Unknown]
  - Pharyngeal oedema [Unknown]
  - Oropharyngeal pain [Unknown]
  - Swollen tongue [Unknown]
  - Decreased appetite [Unknown]
  - Dysphagia [Unknown]
  - Abdominal distension [Unknown]
